FAERS Safety Report 21126228 (Version 1)
Quarter: 2022Q3

REPORT INFORMATION
  Report Type: Spontaneous
  Country: US (occurrence: None)
  Receive Date: 20220719
  Receipt Date: 20220719
  Transmission Date: 20221026
  Serious: Yes (Hospitalization)
  Sender: FDA-Public Use
  Company Number: None

PATIENT
  Age: 72 Year

DRUGS (2)
  1. BRILLIANT GREEN [Suspect]
     Active Substance: BRILLIANT GREEN
  2. INDIGO CARMINE [Suspect]
     Active Substance: INDIGOTINDISULFONATE SODIUM

REACTIONS (10)
  - Incorrect route of product administration [None]
  - Wrong product administered [None]
  - Hypotension [None]
  - Tachycardia [None]
  - Troponin increased [None]
  - Acute myocardial infarction [None]
  - Left ventricle outflow tract obstruction [None]
  - Ejection fraction decreased [None]
  - Vasoplegia syndrome [None]
  - Systolic anterior motion of mitral valve [None]
